FAERS Safety Report 16223499 (Version 1)
Quarter: 2019Q2

REPORT INFORMATION
  Report Type: Spontaneous
  Country: US (occurrence: US)
  Receive Date: 20190422
  Receipt Date: 20190422
  Transmission Date: 20190711
  Serious: Yes (Other)
  Sender: FDA-Public Use
  Company Number: US-MYLANLABS-2019M1036784

PATIENT
  Age: 68 Year
  Sex: Female

DRUGS (5)
  1. ROPINIROLE. [Concomitant]
     Active Substance: ROPINIROLE
     Indication: PRODUCT USED FOR UNKNOWN INDICATION
     Route: 048
  2. PRAVASTATIN. [Concomitant]
     Active Substance: PRAVASTATIN
     Indication: PRODUCT USED FOR UNKNOWN INDICATION
     Route: 048
  3. MIDODRINE [Suspect]
     Active Substance: MIDODRINE
     Indication: ORTHOSTATIC HYPOTENSION
     Dosage: 5MG THREE TIMES A DAY; LATER DECREASED TO 5MG TWICE A DAY
     Route: 048
  4. SINEMET [Concomitant]
     Active Substance: CARBIDOPA\LEVODOPA
     Indication: PRODUCT USED FOR UNKNOWN INDICATION
     Dosage: 1DF THREE TIMES DAILY
     Route: 048
  5. METOPROLOL. [Concomitant]
     Active Substance: METOPROLOL
     Indication: PRODUCT USED FOR UNKNOWN INDICATION
     Route: 048

REACTIONS (5)
  - Condition aggravated [Recovering/Resolving]
  - Pruritus [Recovered/Resolved]
  - Off label use [Recovering/Resolving]
  - Supine hypertension [Recovering/Resolving]
  - Piloerection [Recovered/Resolved]
